FAERS Safety Report 10552053 (Version 1)
Quarter: 2014Q4

REPORT INFORMATION
  Report Type: Spontaneous
  Country: US (occurrence: None)
  Receive Date: 20141027
  Receipt Date: 20141027
  Transmission Date: 20150529
  Serious: Yes (Other)
  Sender: FDA-Public Use
  Company Number: US-016579

PATIENT
  Age: 32 Year
  Sex: Female
  Weight: 58.06 kg

DRUGS (1)
  1. ENDOMETRIN [Suspect]
     Active Substance: PROGESTERONE
     Indication: VAGINAL HAEMORRHAGE
     Dosage: FOR LUTEAL PHASE OF EACH CYCLE (2 WEEKS)
     Route: 067
     Dates: start: 201306, end: 201309

REACTIONS (5)
  - Exposure during pregnancy [None]
  - Drug ineffective [None]
  - Vaginal haemorrhage [None]
  - Abortion spontaneous [None]
  - Coital bleeding [None]

NARRATIVE: CASE EVENT DATE: 201306
